FAERS Safety Report 13676180 (Version 1)
Quarter: 2017Q2

REPORT INFORMATION
  Report Type: Spontaneous
  Country: AU (occurrence: AU)
  Receive Date: 20170622
  Receipt Date: 20170622
  Transmission Date: 20170830
  Serious: Yes (Other)
  Sender: FDA-Public Use
  Company Number: AU-ROCHE-1950533

PATIENT
  Age: 45 Year
  Sex: Male

DRUGS (4)
  1. VALIUM [Suspect]
     Active Substance: DIAZEPAM
     Indication: STRESS
     Route: 065
  2. TEMAZEPAM. [Suspect]
     Active Substance: TEMAZEPAM
     Indication: STRESS
     Route: 065
  3. VALIUM [Suspect]
     Active Substance: DIAZEPAM
     Indication: INSOMNIA
  4. TEMAZEPAM. [Suspect]
     Active Substance: TEMAZEPAM
     Indication: INSOMNIA

REACTIONS (7)
  - Social avoidant behaviour [Unknown]
  - Dependence [Unknown]
  - Amnesia [Unknown]
  - Accidental overdose [Unknown]
  - Drug ineffective [Unknown]
  - Drug use disorder [Unknown]
  - Somnolence [Unknown]
